FAERS Safety Report 4598761-4 (Version None)
Quarter: 2005Q1

REPORT INFORMATION
  Report Type: 
  Country: None (occurrence: None)
  Receive Date: 20050301
  Receipt Date: 20050301
  Transmission Date: 20050727
  Serious: Yes (Life-Threatening, Hospitalization)
  Sender: FDA-Public Use
  Company Number: None

PATIENT
  Age: 23 Year
  Sex: Female
  Weight: 72.5755 kg

DRUGS (3)
  1. GABITRIL [Suspect]
     Indication: ENDOMETRIOSIS
  2. GABITRIL [Suspect]
     Indication: PAIN MANAGEMENT
  3. GABITRIL [Suspect]
     Indication: PELVIC PAIN

REACTIONS (10)
  - CONVULSION [None]
  - DIZZINESS [None]
  - DYSARTHRIA [None]
  - FALL [None]
  - HEADACHE [None]
  - HYPOAESTHESIA [None]
  - LOSS OF CONSCIOUSNESS [None]
  - MEMORY IMPAIRMENT [None]
  - SPEECH DISORDER [None]
  - UPPER LIMB FRACTURE [None]
